FAERS Safety Report 9693133 (Version 1)
Quarter: 2013Q4

REPORT INFORMATION
  Report Type: Spontaneous
  Country: GB (occurrence: GB)
  Receive Date: 20131118
  Receipt Date: 20131118
  Transmission Date: 20140711
  Serious: Yes (Hospitalization)
  Sender: FDA-Public Use
  Company Number: PHFR2013GB006464

PATIENT
  Sex: Male

DRUGS (5)
  1. CLOZAPINE [Suspect]
     Indication: SCHIZOPHRENIA
     Dosage: 550 MG, (150MG IN THE MORNING, 400MG AT NIGHT)
     Route: 048
     Dates: start: 2008
  2. HYOSCINE HYDROBROMIDE [Concomitant]
  3. PROPANTHELINE BROMIDE [Concomitant]
  4. SIMVASTATIN [Concomitant]
  5. RAMIPRIL [Concomitant]

REACTIONS (3)
  - C-reactive protein increased [Not Recovered/Not Resolved]
  - Malaise [Unknown]
  - Red blood cell sedimentation rate increased [Not Recovered/Not Resolved]
